FAERS Safety Report 8180834-0 (Version None)
Quarter: 2012Q1

REPORT INFORMATION
  Report Type: 
  Country: None (occurrence: None)
  Receive Date: 20120301
  Receipt Date: 20120301
  Transmission Date: 20120608
  Serious: Yes (Life-Threatening, Hospitalization, Disabling)
  Sender: FDA-Public Use
  Company Number: None

PATIENT
  Sex: Female
  Weight: 136 kg

DRUGS (13)
  1. AROMASIN [Suspect]
     Indication: ADENOCARCINOMA
     Dosage: 25MG.
     Dates: start: 20111219, end: 20120129
  2. LEVACIN [Concomitant]
  3. LESCOL [Concomitant]
  4. CARDIZEM UNO [Concomitant]
  5. ENALAPRIL MALEATE [Concomitant]
  6. FUROSEMIDE [Concomitant]
  7. XALATAN [Concomitant]
  8. PINEX FORTE 1X3 (PARACET 500MG/30MG CODEINE PHOSPHATE) [Concomitant]
  9. ALLAPUR [Concomitant]
  10. VOLTAREN [Concomitant]
  11. PANTOPRAZOLE [Concomitant]
  12. SPIRONOLACTONE [Concomitant]
  13. ABYL-E [Concomitant]

REACTIONS (17)
  - PAIN [None]
  - DYSARTHRIA [None]
  - CHEST PAIN [None]
  - FEELING COLD [None]
  - PULMONARY THROMBOSIS [None]
  - ACTIVITIES OF DAILY LIVING IMPAIRED [None]
  - MYALGIA [None]
  - AMNESIA [None]
  - HYPERHIDROSIS [None]
  - PARALYSIS [None]
  - COUGH [None]
  - ASTHENIA [None]
  - HYPOAESTHESIA [None]
  - DIZZINESS [None]
  - DYSPNOEA [None]
  - NASOPHARYNGITIS [None]
  - MUSCULAR WEAKNESS [None]
